FAERS Safety Report 16975672 (Version 1)
Quarter: 2019Q4

REPORT INFORMATION
  Report Type: Spontaneous
  Country: US (occurrence: US)
  Receive Date: 20191030
  Receipt Date: 20191030
  Transmission Date: 20200122
  Serious: No
  Sender: FDA-Public Use
  Company Number: US-COVIS PHARMA B.V.-2019COV00158

PATIENT
  Sex: Female
  Weight: 117.91 kg

DRUGS (16)
  1. OMNARIS [Suspect]
     Active Substance: CICLESONIDE
     Indication: ALLERGY TO PLANTS
     Dosage: 50 ?G IN EACH NOSTRIL, 1X/DAY, SEASONALLY
     Route: 045
     Dates: start: 2014
  2. RABEPRAZOLE SODIUM. [Concomitant]
     Active Substance: RABEPRAZOLE SODIUM
     Dosage: 20 MG, 1X/DAY
  3. PRODEN PLAQUEOFF [Concomitant]
     Dosage: UNK, 1X/DAY
  4. ALBUTEROL HFA [Concomitant]
     Active Substance: ALBUTEROL SULFATE
     Dosage: AS NEEDED - ON AVERAGE 1X/ DAY
  5. NABUMETONE. [Concomitant]
     Active Substance: NABUMETONE
     Dosage: 500 MG, 2X/DAY
  6. TRIAMTERENE-HCTZ [Concomitant]
     Active Substance: HYDROCHLOROTHIAZIDE\TRIAMTERENE
     Dosage: ONCE OR TWICE WEEKLY DURING THE SUMMER
  7. TROSPIUM CHLORIDE ER [Concomitant]
     Active Substance: TROSPIUM CHLORIDE
     Dosage: 60 MG, 1X/DAY
  8. SHIFT, MOVE, FREE ULTRA OTC TYPE 2 COLLAGEN [Concomitant]
  9. FISH OIL [Concomitant]
     Active Substance: FISH OIL
     Dosage: 500 MG, TWO DAYS ON, ONE DAY OFF
  10. NEXIUM (PRESCRIPTION STRENGTH) [Concomitant]
  11. LISINOPRIL-HCTZ [Concomitant]
     Active Substance: HYDROCHLOROTHIAZIDE\LISINOPRIL
     Dosage: 1 TABLETS, 1X/DAY
  12. AZELASTINE HCL [Concomitant]
     Active Substance: AZELASTINE HYDROCHLORIDE
     Dosage: 1 DROP PER EYE, 1X/DAY
  13. PRAVASTATIN SODIUM. [Concomitant]
     Active Substance: PRAVASTATIN SODIUM
     Dosage: 40 MG, 1X/DAY
  14. SYMBICORT [Concomitant]
     Active Substance: BUDESONIDE\FORMOTEROL FUMARATE DIHYDRATE
     Dosage: 2 PUFFS, 2X/DAY
  15. NEXIUM 24HR [Concomitant]
     Active Substance: ESOMEPRAZOLE MAGNESIUM
     Dosage: 1 DOSAGE UNITS, 1X/DAY IN THE EVENING
  16. CENTRUM SILVER MULTIVITAMIN [Concomitant]
     Dosage: UNK, 1X/DAY

REACTIONS (8)
  - Expired product administered [Unknown]
  - Dysphonia [Not Recovered/Not Resolved]
  - Peripheral swelling [Not Recovered/Not Resolved]
  - Therapeutic product effect incomplete [Not Recovered/Not Resolved]
  - Body height decreased [Not Recovered/Not Resolved]
  - Dyspnoea [Not Recovered/Not Resolved]
  - Increased upper airway secretion [Not Recovered/Not Resolved]
  - Cough [Unknown]

NARRATIVE: CASE EVENT DATE: 2019
